FAERS Safety Report 5655632-X (Version None)
Quarter: 2008Q1

REPORT INFORMATION
  Report Type: 
  Country: None (occurrence: None)
  Receive Date: 20080307
  Receipt Date: 20080305
  Transmission Date: 20080703
  Serious: Yes (Life-Threatening)
  Sender: FDA-Public Use
  Company Number: JP-JNJFOC-20080301291

PATIENT
  Age: 74 Year
  Sex: Female

DRUGS (11)
  1. ITRIZOLE [Suspect]
     Indication: DRUG USE FOR UNKNOWN INDICATION
     Route: 048
  2. OMEPRAL [Suspect]
     Indication: DRUG USE FOR UNKNOWN INDICATION
     Route: 065
  3. VESANOID [Concomitant]
     Route: 065
  4. PROMAC [Concomitant]
     Route: 065
  5. DIOVAN [Concomitant]
     Route: 065
  6. VALTREX [Concomitant]
     Route: 065
  7. TERNELIN [Concomitant]
     Route: 065
  8. HOKUNALIN:TAPE [Concomitant]
     Route: 065
  9. PROCATEROL HCL [Concomitant]
     Route: 065
  10. FLUTIDE:DISKUS [Concomitant]
     Route: 065
  11. SINGULAIR [Concomitant]
     Route: 065

REACTIONS (1)
  - VENTRICULAR FIBRILLATION [None]
